FAERS Safety Report 20676361 (Version 3)
Quarter: 2022Q4

REPORT INFORMATION
  Report Type: Report from Study
  Country: US (occurrence: US)
  Receive Date: 20220405
  Receipt Date: 20221028
  Transmission Date: 20230112
  Serious: Yes (Hospitalization, Other)
  Sender: FDA-Public Use
  Company Number: US-009507513-2204USA001368

PATIENT
  Sex: Female

DRUGS (4)
  1. JANUVIA [Suspect]
     Active Substance: SITAGLIPTIN PHOSPHATE
     Indication: Type 2 diabetes mellitus
     Dosage: 100 MILLIGRAM/ DAILY
     Route: 048
  2. GLYBURIDE [Concomitant]
     Active Substance: GLYBURIDE
  3. PRAVASTATIN [Concomitant]
     Active Substance: PRAVASTATIN
  4. LOSARTAN [Concomitant]
     Active Substance: LOSARTAN
     Route: 048

REACTIONS (9)
  - Cerebrovascular accident [Unknown]
  - Hepatic cirrhosis [Unknown]
  - COVID-19 [Unknown]
  - Alopecia [Unknown]
  - Hepatomegaly [Unknown]
  - Hepatic enzyme increased [Unknown]
  - Nasopharyngitis [Recovering/Resolving]
  - Inability to afford medication [Unknown]
  - Product dose omission issue [Unknown]

NARRATIVE: CASE EVENT DATE: 20210101
